FAERS Safety Report 8772703 (Version 5)
Quarter: 2013Q2

REPORT INFORMATION
  Report Type: Report from Study
  Country: JP (occurrence: JP)
  Receive Date: 20120905
  Receipt Date: 20130416
  Transmission Date: 20140414
  Serious: Yes (Other)
  Sender: FDA-Public Use
  Company Number: JP-009507513-1208JPN009677

PATIENT
  Age: 64 Year
  Sex: Male
  Weight: 63 kg

DRUGS (12)
  1. PEGINTRON [Suspect]
     Indication: CHRONIC HEPATITIS C
     Dosage: 1.5 MICROGRAM PER KILOGRAM, UNK
     Route: 058
     Dates: start: 20120619, end: 20120626
  2. PEGINTRON [Suspect]
     Dosage: 80MICROGRAM PER BODY PER WEEKLY
     Route: 058
     Dates: start: 20120704, end: 20120719
  3. PEGINTRON [Suspect]
     Dosage: 1MICROGRAM PER KILOGRAM, QW
     Route: 058
     Dates: start: 20120725, end: 20120801
  4. REBETOL [Suspect]
     Indication: CHRONIC HEPATITIS C
     Dosage: 800 MG, QD
     Route: 048
     Dates: start: 20120619, end: 20120703
  5. REBETOL [Suspect]
     Dosage: 600 MG, QD
     Route: 048
     Dates: start: 20120704, end: 20120730
  6. REBETOL [Suspect]
     Dosage: 400 MG, QD, CUMULATIVE DOSE: 800 MG
     Route: 048
     Dates: start: 20120801, end: 20120807
  7. TELAVIC [Suspect]
     Indication: CHRONIC HEPATITIS C
     Dosage: 1500 MG, UNK
     Route: 048
     Dates: start: 20120619, end: 20120730
  8. GLACTIV [Concomitant]
     Indication: DIABETES MELLITUS
     Dosage: 1 UNK, UNK
     Route: 048
  9. BASEN [Concomitant]
     Indication: DIABETES MELLITUS
     Dosage: 3  DF, QD
     Route: 048
  10. AMARYL [Concomitant]
     Indication: DIABETES MELLITUS
     Dosage: 1 DF, QD
     Route: 048
  11. NORVASC [Concomitant]
     Indication: HYPERTENSION
     Dosage: 1 DF, QD
     Route: 048
  12. MAGMITT [Concomitant]
     Indication: CONSTIPATION
     Dosage: 990 MG, QD
     Route: 048
     Dates: start: 20120815

REACTIONS (8)
  - Vomiting [Recovered/Resolved]
  - Vomiting [Not Recovered/Not Resolved]
  - Toxic skin eruption [Recovered/Resolved]
  - Malaise [Recovered/Resolved]
  - Nausea [Not Recovered/Not Resolved]
  - Malaise [Recovered/Resolved]
  - Nausea [Recovered/Resolved]
  - Decreased appetite [Recovered/Resolved]
